FAERS Safety Report 5213112-X (Version None)
Quarter: 2007Q1

REPORT INFORMATION
  Report Type: 
  Country: None (occurrence: None)
  Receive Date: 20070118
  Receipt Date: 20070118
  Transmission Date: 20070707
  Serious: No
  Sender: FDA-Public Use
  Company Number: None

PATIENT

DRUGS (1)
  1. OPTIRAY 350 [Suspect]

REACTIONS (1)
  - ADVERSE DRUG REACTION [None]
